FAERS Safety Report 10618808 (Version 1)
Quarter: 2014Q4

REPORT INFORMATION
  Report Type: Report from Study
  Country: IT (occurrence: IT)
  Receive Date: 20141202
  Receipt Date: 20141202
  Transmission Date: 20150529
  Serious: Yes (Death, Other)
  Sender: FDA-Public Use
  Company Number: IT-ROCHE-1496479

PATIENT

DRUGS (1)
  1. RITUXIMAB [Suspect]
     Active Substance: RITUXIMAB
     Indication: AUTOIMMUNE HAEMOLYTIC ANAEMIA
     Dosage: 375MG/M2 PER WEEK FOR 4 WEEKS OR AT THE FIXED LOW DOSE (LD) OF 100 MG/WK FOR 4 WEEKS
     Route: 042

REACTIONS (10)
  - Pulmonary embolism [Unknown]
  - Deep vein thrombosis [Unknown]
  - Myocardial ischaemia [Unknown]
  - Infection [Fatal]
  - Cerebrovascular accident [Unknown]
  - Transient ischaemic attack [Unknown]
  - Venous thrombosis [Unknown]
  - Respiratory failure [Fatal]
  - Septic shock [Fatal]
  - Disseminated intravascular coagulation [Unknown]
